FAERS Safety Report 21168576 (Version 1)
Quarter: 2022Q3

REPORT INFORMATION
  Report Type: Spontaneous
  Country: US (occurrence: US)
  Receive Date: 20220803
  Receipt Date: 20220803
  Transmission Date: 20221026
  Serious: No
  Sender: FDA-Public Use
  Company Number: US-ELI_LILLY_AND_COMPANY-US202207009076

PATIENT
  Age: 60 Year
  Sex: Female

DRUGS (2)
  1. BEBTELOVIMAB [Suspect]
     Active Substance: BEBTELOVIMAB
     Indication: COVID-19
     Dosage: UNK UNK, UNKNOWN
     Route: 065
  2. BEBTELOVIMAB [Suspect]
     Active Substance: BEBTELOVIMAB
     Dosage: UNK, UNKNOWN
     Route: 065
     Dates: start: 20220718

REACTIONS (16)
  - Tongue discolouration [Recovered/Resolved]
  - Productive cough [Unknown]
  - Chills [Unknown]
  - Ageusia [Not Recovered/Not Resolved]
  - Feeling abnormal [Unknown]
  - Tongue discolouration [Unknown]
  - Paraesthesia oral [Unknown]
  - Hyperhidrosis [Unknown]
  - Pain [Unknown]
  - Crying [Unknown]
  - Hypoaesthesia [Unknown]
  - Injection site bruising [Not Recovered/Not Resolved]
  - Injection site swelling [Not Recovered/Not Resolved]
  - Injection site mass [Not Recovered/Not Resolved]
  - Anosmia [Not Recovered/Not Resolved]
  - COVID-19 [Unknown]

NARRATIVE: CASE EVENT DATE: 20220301
